FAERS Safety Report 12493707 (Version 2)
Quarter: 2016Q3

REPORT INFORMATION
  Report Type: Spontaneous
  Country: PT (occurrence: PT)
  Receive Date: 20160623
  Receipt Date: 20160719
  Transmission Date: 20161109
  Serious: Yes (Other)
  Sender: FDA-Public Use
  Company Number: PT-JNJFOC-20160616903

PATIENT
  Age: 41 Year
  Sex: Female

DRUGS (2)
  1. SIMPONI [Suspect]
     Active Substance: GOLIMUMAB
     Indication: ANKYLOSING SPONDYLITIS
     Route: 058
  2. SIMPONI [Suspect]
     Active Substance: GOLIMUMAB
     Indication: ANKYLOSING SPONDYLITIS
     Dosage: OCT2012 - FEB 2013 (SPECIFIC DATE COULD NOT BE PROVIDED)
     Route: 058

REACTIONS (3)
  - Hyperthyroidism [Unknown]
  - Prolactin-producing pituitary tumour [Not Recovered/Not Resolved]
  - Hirsutism [Unknown]

NARRATIVE: CASE EVENT DATE: 201602
